FAERS Safety Report 16461051 (Version 3)
Quarter: 2019Q3

REPORT INFORMATION
  Report Type: Spontaneous
  Country: US (occurrence: US)
  Receive Date: 20190621
  Receipt Date: 20190725
  Transmission Date: 20191004
  Serious: Yes (Hospitalization)
  Sender: FDA-Public Use
  Company Number: US-AUROBINDO-AUR-APL-2019-035697

PATIENT

DRUGS (2)
  1. CLOZAPINE 50 MG TABLET USP [Suspect]
     Active Substance: CLOZAPINE
     Dosage: 50 MILLIGRAM, 3 TABLETS PER DAY AT BED TIME
     Route: 048
     Dates: start: 20190707
  2. CLOZAPINE 50 MG TABLET USP [Suspect]
     Active Substance: CLOZAPINE
     Indication: SCHIZOPHRENIA
     Dosage: 50 MILLIGRAM, 3 TABLETS PER DAY AT BED TIME
     Route: 048
     Dates: start: 20180406

REACTIONS (2)
  - Pyrexia [Recovered/Resolved]
  - Neutrophilia [Recovered/Resolved]
